FAERS Safety Report 14027533 (Version 6)
Quarter: 2017Q4

REPORT INFORMATION
  Report Type: Spontaneous
  Country: IT (occurrence: IT)
  Receive Date: 20170929
  Receipt Date: 20171129
  Transmission Date: 20180321
  Serious: Yes (Death, Hospitalization)
  Sender: FDA-Public Use
  Company Number: PHHY2017IT140668

PATIENT
  Age: 54 Year
  Sex: Male

DRUGS (1)
  1. COSENTYX [Suspect]
     Active Substance: SECUKINUMAB
     Indication: PSORIASIS
     Dosage: FOR 8 MONTHS
     Route: 065
     Dates: start: 201701

REACTIONS (3)
  - Encephalitis [Fatal]
  - Death [Fatal]
  - Pyrexia [Fatal]

NARRATIVE: CASE EVENT DATE: 20170915
